FAERS Safety Report 9469614 (Version 1)
Quarter: 2013Q3

REPORT INFORMATION
  Report Type: Spontaneous
  Country: CN (occurrence: CN)
  Receive Date: 20130822
  Receipt Date: 20130822
  Transmission Date: 20140515
  Serious: Yes (Hospitalization)
  Sender: FDA-Public Use
  Company Number: CN-BRISTOL-MYERS SQUIBB COMPANY-19199298

PATIENT
  Age: 55 Year
  Sex: Female

DRUGS (2)
  1. METFORMIN HCL TABS [Suspect]
     Indication: DIABETES MELLITUS
     Route: 048
     Dates: start: 20050101, end: 20120531
  2. GLIPIZIDE [Suspect]
     Indication: DIABETES MELLITUS
     Dosage: TABS
     Route: 048
     Dates: start: 20050101, end: 20120531

REACTIONS (3)
  - Rash [Recovering/Resolving]
  - Pyrexia [Recovering/Resolving]
  - Blister [Recovering/Resolving]
